FAERS Safety Report 6118504-2 (Version None)
Quarter: 2009Q1

REPORT INFORMATION
  Report Type: 
  Country: None (occurrence: None)
  Receive Date: 20090314
  Receipt Date: 20090220
  Transmission Date: 20090719
  Serious: No
  Sender: FDA-Public Use
  Company Number: US-ABBOTT-09P-163-0558711-00

PATIENT
  Sex: Male
  Weight: 62.198 kg

DRUGS (1)
  1. HUMIRA [Suspect]
     Indication: RHEUMATOID ARTHRITIS
     Dates: start: 20021001

REACTIONS (3)
  - CHILLS [None]
  - PYREXIA [None]
  - UPPER RESPIRATORY TRACT CONGESTION [None]
